FAERS Safety Report 9127991 (Version 1)
Quarter: 2013Q1

REPORT INFORMATION
  Report Type: Report from Study
  Country: JP (occurrence: JP)
  Receive Date: 20130122
  Receipt Date: 20130122
  Transmission Date: 20140127
  Serious: Yes (Other)
  Sender: FDA-Public Use
  Company Number: JP-VERTEX PHARMACEUTICAL INC.-2012-021513

PATIENT
  Age: 60 Year
  Sex: Female

DRUGS (20)
  1. VX-950 (TELAPREVIR) [Suspect]
     Indication: CHRONIC HEPATITIS C
     Dosage: 1500 MG, QD
     Route: 048
     Dates: start: 20120710, end: 20120826
  2. VX-950 (TELAPREVIR) [Suspect]
     Dosage: 1000 MG,QD
     Route: 048
     Dates: start: 20120827, end: 20121001
  3. RIBAVIRIN [Suspect]
     Indication: CHRONIC HEPATITIS C
     Dosage: 600 MG, QD
     Route: 048
     Dates: start: 20120710, end: 20120729
  4. RIBAVIRIN [Suspect]
     Dosage: 200 MG, QD
     Route: 048
     Dates: start: 20120730, end: 20120812
  5. RIBAVIRIN [Suspect]
     Dosage: 400 MG, QD
     Route: 048
     Dates: start: 20120813
  6. RIBAVIRIN [Suspect]
     Dosage: 200 MG, QD
     Route: 048
  7. RIBAVIRIN [Suspect]
     Dosage: 400 MG, QD
     Route: 048
     Dates: start: 20121029, end: 20121224
  8. PEGINTERFERON ALFA-2B [Suspect]
     Indication: CHRONIC HEPATITIS C
     Dosage: 0.7 ?G/KG, QW
     Route: 058
     Dates: start: 20120710, end: 20120723
  9. PEGINTERFERON ALFA-2B [Suspect]
     Dosage: 0.5 ?G/KG, QW
     Route: 058
     Dates: start: 20120730, end: 20120820
  10. PEGINTERFERON ALFA-2B [Suspect]
     Dosage: 0.5 ?G/KG, QW
     Route: 058
     Dates: start: 20120903, end: 20120917
  11. PEGINTERFERON ALFA-2B [Suspect]
     Dosage: 0.5 ?G/KG, QW
     Route: 058
     Dates: start: 20121001
  12. PEGINTERFERON ALFA-2B [Suspect]
     Dosage: 0.5 ?G/KG, QW
     Route: 058
     Dates: start: 20121009, end: 20121015
  13. PEGINTERFERON ALFA-2B [Suspect]
     Dosage: 0.4 ?G/KG, QW
     Route: 058
     Dates: start: 20121022, end: 20121022
  14. PEGINTERFERON ALFA-2B [Suspect]
     Dosage: 0.5 ?G/KG, QW
     Route: 058
     Dates: start: 20121029, end: 20121112
  15. PEGINTERFERON ALFA-2B [Suspect]
     Dosage: 0.3 ?G/KG, QW
     Route: 058
     Dates: start: 20121119, end: 20121219
  16. EPADEL                             /01682401/ [Concomitant]
     Dosage: 1800 MG, QD
     Route: 048
  17. FEROTYM [Concomitant]
     Dosage: 100 MG, QD
     Route: 048
  18. ONEALFA [Concomitant]
     Dosage: 0.5 ?G, QD
     Route: 058
  19. PARIET [Concomitant]
     Dosage: 10 MG, QD
     Route: 048
  20. CLARITIN REDITABS [Concomitant]
     Dosage: 10 MG, QD
     Route: 048

REACTIONS (8)
  - Renal disorder [Not Recovered/Not Resolved]
  - Anaemia [Not Recovered/Not Resolved]
  - Anaemia [Not Recovered/Not Resolved]
  - Anaemia [Not Recovered/Not Resolved]
  - Hyperuricaemia [Not Recovered/Not Resolved]
  - Platelet count decreased [Not Recovered/Not Resolved]
  - Platelet count decreased [Not Recovered/Not Resolved]
  - Platelet count decreased [Not Recovered/Not Resolved]
